FAERS Safety Report 25709790 (Version 1)
Quarter: 2025Q3

REPORT INFORMATION
  Report Type: Spontaneous
  Country: US (occurrence: None)
  Receive Date: 20250820
  Receipt Date: 20250820
  Transmission Date: 20251020
  Serious: Yes (Hospitalization)
  Sender: FDA-CTU
  Company Number: None

PATIENT
  Age: 72 Year
  Sex: Female

DRUGS (10)
  1. CAPECITABINE [Suspect]
     Active Substance: CAPECITABINE
     Dosage: FREQUENCY : TWICE A DAY;?
     Route: 048
     Dates: start: 20250506
  2. DOCUSATE SOD 100MG CAPSULES [Concomitant]
  3. FEXOFENADINE [Concomitant]
     Active Substance: FEXOFENADINE HYDROCHLORIDE
  4. GABAPENTI N 300MG CAPSULES [Concomitant]
  5. LIDOCAINE [Concomitant]
     Active Substance: LIDOCAINE
  6. MULTl 50+ FOR HER CAPSULES [Concomitant]
  7. NAPROXEN [Concomitant]
     Active Substance: NAPROXEN
  8. OMEPRAZOLE [Concomitant]
     Active Substance: OMEPRAZOLE
  9. ROSUVASTATIN [Concomitant]
     Active Substance: ROSUVASTATIN
  10. VENLAFAXINE ER 150MG CAPSULES [Concomitant]

REACTIONS (3)
  - Constipation [None]
  - Obstruction [None]
  - Therapy interrupted [None]
